FAERS Safety Report 5117664-X (Version None)
Quarter: 2006Q3

REPORT INFORMATION
  Report Type: 
  Country: None (occurrence: None)
  Receive Date: 20060926
  Receipt Date: 20060922
  Transmission Date: 20061208
  Serious: Yes (Hospitalization)
  Sender: FDA-Public Use
  Company Number: TPG2006A00465

PATIENT
  Age: 66 Year
  Sex: Male

DRUGS (9)
  1. LEUPROLIDE ACETATE [Suspect]
     Indication: PROSTATE CANCER
     Dosage: (11.25 MG, 1 IN 3 M) SUBCUTANEOUS
     Route: 058
     Dates: start: 20060101
  2. HCT BETA (HYDROCHLOROTHIAZIDE) (TABLETS) [Concomitant]
  3. CORVO (ENALAPRIL MALEATE) (TABLETS) [Concomitant]
  4. SALOSPIR (ACETYLSALICYLIC ACID) (100 MILLIGRAM,) [Concomitant]
  5. SORTIS (ATORVASTATIN CALCIUM) (10 MILLIGRAM, TABLETS) [Concomitant]
  6. ATENOLOL (ATENOLOL) (25 MILLIGRAM, TABLETS) [Concomitant]
  7. ALLOPURINOL (ALLOPURINOL) (300 MILLIGRAM, TABLETS) [Concomitant]
  8. SERETIDE DISKUS (SERETIDE) (INHALANT) [Concomitant]
  9. BEROVENT (BREVA) (INHALANT) [Concomitant]

REACTIONS (10)
  - DYSPNOEA EXERTIONAL [None]
  - EMPHYSEMA [None]
  - GENERAL PHYSICAL HEALTH DETERIORATION [None]
  - HEPATIC STEATOSIS [None]
  - HEPATOCELLULAR DAMAGE [None]
  - HEPATOMEGALY [None]
  - MUSCLE ATROPHY [None]
  - OEDEMA PERIPHERAL [None]
  - PROCTITIS [None]
  - RHONCHI [None]
